FAERS Safety Report 7990072-X (Version None)
Quarter: 2011Q4

REPORT INFORMATION
  Report Type: 
  Country: None (occurrence: None)
  Receive Date: 20111215
  Receipt Date: 20111207
  Transmission Date: 20120403
  Serious: Yes (Hospitalization, Other)
  Sender: FDA-Public Use
  Company Number: USA/USA/11/0022275

PATIENT
  Age: 71 Year
  Sex: Female

DRUGS (2)
  1. AUGMENTIN [Suspect]
     Indication: UPPER RESPIRATORY TRACT INFECTION
  2. ERYTHROMYCIN [Suspect]
     Indication: GASTROINTESTINAL DISORDER
     Dosage: 250 MG, EVERY 6 HOURS FOR A TOTAL OF 4 DOSES, INTRAVENOUS
     Route: 042
     Dates: start: 20110601, end: 20110601

REACTIONS (9)
  - HEPATIC FUNCTION ABNORMAL [None]
  - RASH [None]
  - ILL-DEFINED DISORDER [None]
  - ABDOMINAL PAIN [None]
  - ACCIDENTAL OVERDOSE [None]
  - DECREASED APPETITE [None]
  - INCORRECT DOSE ADMINISTERED [None]
  - FEELING ABNORMAL [None]
  - MALAISE [None]
